FAERS Safety Report 6022555-6 (Version None)
Quarter: 2008Q4

REPORT INFORMATION
  Report Type: 
  Country: None (occurrence: None)
  Receive Date: 20081230
  Receipt Date: 20081222
  Transmission Date: 20090506
  Serious: Yes (Other)
  Sender: FDA-Public Use
  Company Number: PHHY2008FR32988

PATIENT
  Sex: Male

DRUGS (5)
  1. ZOMETA [Suspect]
     Dosage: ONE MONTHLY DOSAGE FORM
     Route: 041
     Dates: start: 20070401, end: 20071031
  2. ARANESP [Concomitant]
     Route: 058
  3. TRAMADOL [Concomitant]
     Indication: PAIN
     Dosage: 150 MG, BID
     Route: 048
  4. PARACETAMOL [Concomitant]
     Indication: PAIN
     Dosage: 1 G, QID
     Route: 048
  5. NAVELBINE [Concomitant]
     Indication: NEOPLASM MALIGNANT
     Dosage: UNK
     Dates: start: 20080901

REACTIONS (1)
  - OSTEONECROSIS [None]
